FAERS Safety Report 9774965 (Version 1)
Quarter: 2013Q4

REPORT INFORMATION
  Report Type: Spontaneous
  Country: US (occurrence: US)
  Receive Date: 20131220
  Receipt Date: 20131220
  Transmission Date: 20140711
  Serious: No
  Sender: FDA-Public Use
  Company Number: US-GLAXOSMITHKLINE-A1025220A

PATIENT
  Age: 78 Year
  Sex: Male

DRUGS (3)
  1. AVODART [Suspect]
     Indication: NOCTURIA
     Dosage: 1CAP PER DAY
     Route: 048
     Dates: start: 2011, end: 20130523
  2. BLOOD PRESSURE MEDICATION [Concomitant]
     Indication: HYPERTENSION
  3. CRESTOR [Concomitant]

REACTIONS (1)
  - Erectile dysfunction [Recovering/Resolving]
